FAERS Safety Report 18186228 (Version 1)
Quarter: 2020Q3

REPORT INFORMATION
  Report Type: Spontaneous
  Country: US (occurrence: US)
  Receive Date: 20200822
  Receipt Date: 20200822
  Transmission Date: 20201103
  Serious: Yes (Death)
  Sender: FDA-Public Use
  Company Number: None

PATIENT
  Age: 44 Year
  Sex: Female
  Weight: 79.65 kg

DRUGS (8)
  1. SUTENT [Suspect]
     Active Substance: SUNITINIB MALATE
     Indication: GASTROINTESTINAL STROMAL TUMOUR
     Dosage: ?          OTHER FREQUENCY:QD X28DAYS Q42DAYS;?
     Route: 048
     Dates: start: 20200501, end: 20200814
  2. XANAX [Concomitant]
     Active Substance: ALPRAZOLAM
  3. NEXIUM 20MG [Concomitant]
  4. VITAMIN B12 500MCG [Concomitant]
  5. TYLENOL [Concomitant]
     Active Substance: ACETAMINOPHEN
  6. ATIVAN 1MG [Concomitant]
  7. TUMS EXTRA STRENGTH 750MG [Concomitant]
  8. METOPROLOL TARTRATE 25MG [Concomitant]
     Active Substance: METOPROLOL TARTRATE

REACTIONS (1)
  - Death [None]

NARRATIVE: CASE EVENT DATE: 20200814
